FAERS Safety Report 8965954 (Version 3)
Quarter: 2013Q1

REPORT INFORMATION
  Report Type: Spontaneous
  Country: GB (occurrence: GB)
  Receive Date: 20121217
  Receipt Date: 20130121
  Transmission Date: 20140127
  Serious: Yes (Other)
  Sender: FDA-Public Use
  Company Number: PHFR2012GB005622

PATIENT
  Age: 27 Year
  Sex: Female
  Weight: 67 kg

DRUGS (4)
  1. CLOZARIL [Suspect]
     Indication: SCHIZOPHRENIA
     Dosage: UNK UKN, UNK
     Route: 048
     Dates: start: 20120907
  2. CLOZARIL [Suspect]
     Dosage: 100 MG, BID
     Route: 048
     Dates: start: 20120913, end: 20121001
  3. SODIUM VALPROATE [Concomitant]
     Indication: EPILEPSY
     Dosage: 1000 MG, UNK
     Route: 048
     Dates: start: 20120818
  4. SALBUTAMOL [Concomitant]
     Indication: ASTHMA
     Dosage: UNK, PRN

REACTIONS (11)
  - C-reactive protein increased [Recovered/Resolved]
  - Troponin T increased [Recovered/Resolved]
  - Pericardial effusion [Unknown]
  - Cough [Unknown]
  - Malaise [Unknown]
  - Myopericarditis [Recovering/Resolving]
  - Cardiomyopathy [Unknown]
  - Cardiomegaly [Unknown]
  - Pyrexia [Unknown]
  - Lower respiratory tract infection [Unknown]
  - Tachycardia [Unknown]
